FAERS Safety Report 22118415 (Version 2)
Quarter: 2023Q2

REPORT INFORMATION
  Report Type: Report from Study
  Country: AR (occurrence: None)
  Receive Date: 20230321
  Receipt Date: 20230515
  Transmission Date: 20230722
  Serious: Yes (Other)
  Sender: FDA-Public Use
  Company Number: AR-Merck Healthcare KGaA-9390379

PATIENT
  Sex: Male

DRUGS (1)
  1. SAIZEN [Suspect]
     Active Substance: SOMATROPIN
     Indication: Product used for unknown indication
     Route: 058
     Dates: start: 20210719

REACTIONS (3)
  - Neoplasm [Not Recovered/Not Resolved]
  - Male genital tract operation [Not Recovered/Not Resolved]
  - Dizziness [Not Recovered/Not Resolved]
